FAERS Safety Report 6385753-8 (Version None)
Quarter: 2009Q4

REPORT INFORMATION
  Report Type: 
  Country: None (occurrence: None)
  Receive Date: 20091002
  Receipt Date: 20080926
  Transmission Date: 20100525
  Serious: No
  Sender: FDA-Public Use
  Company Number: US-ASTRAZENECA-2008UW20361

PATIENT
  Age: 49 Year
  Sex: Female
  Weight: 59 kg

DRUGS (3)
  1. ARIMIDEX [Suspect]
     Indication: BREAST CANCER
     Route: 048
     Dates: start: 20080801
  2. CALCIUM [Concomitant]
  3. VITAMIN E [Concomitant]

REACTIONS (3)
  - ALOPECIA [None]
  - DYSGEUSIA [None]
  - PARAESTHESIA [None]
